FAERS Safety Report 25310868 (Version 3)
Quarter: 2025Q4

REPORT INFORMATION
  Report Type: Report from Study
  Country: US (occurrence: US)
  Receive Date: 20250514
  Receipt Date: 20251007
  Transmission Date: 20260117
  Serious: Yes (Hospitalization, Other)
  Sender: SUNOVION
  Company Number: US-SMPA-2025SPA005483

PATIENT
  Age: 80 Year
  Sex: Male

DRUGS (15)
  1. ORGOVYX [Suspect]
     Active Substance: RELUGOLIX
     Indication: Prostate cancer
     Dosage: 360 MG, SINGLE
     Route: 048
     Dates: start: 202408, end: 202408
  2. ORGOVYX [Suspect]
     Active Substance: RELUGOLIX
     Dosage: 120 MG, QD
     Route: 048
     Dates: start: 202408
  3. AMOXICILLIN [Concomitant]
     Active Substance: AMOXICILLIN
     Dosage: UNK
  4. ATORVASTATIN [Concomitant]
     Active Substance: ATORVASTATIN
     Dosage: UNK
  5. CALCITRIOL [Concomitant]
     Active Substance: CALCITRIOL
     Dosage: UNK
  6. ELIQUIS [Concomitant]
     Active Substance: APIXABAN
     Dosage: UNK
  7. JARDIANCE [Concomitant]
     Active Substance: EMPAGLIFLOZIN
     Dosage: UNK
  8. NUBEQA [Concomitant]
     Active Substance: DAROLUTAMIDE
     Dosage: UNK
  9. TIKOSYN [Concomitant]
     Active Substance: DOFETILIDE
     Dosage: UNK
  10. VITAMIN D3 [Concomitant]
     Active Substance: CHOLECALCIFEROL
     Dosage: UNK
  11. CALCIUM [Concomitant]
     Active Substance: CALCIUM
  12. XGEVA [Concomitant]
     Active Substance: DENOSUMAB
  13. DOXYCYCLINE HYCLATE [Concomitant]
     Active Substance: DOXYCYCLINE HYCLATE
  14. ERTAPENEM SODIUM [Concomitant]
     Active Substance: ERTAPENEM SODIUM
  15. CALCIUM [Concomitant]
     Active Substance: CALCIUM

REACTIONS (4)
  - Osteomyelitis [Unknown]
  - Foot operation [Unknown]
  - Lumbar radiculopathy [Unknown]
  - Renal disorder [Unknown]

NARRATIVE: CASE EVENT DATE: 20250101
